FAERS Safety Report 12776421 (Version 4)
Quarter: 2017Q4

REPORT INFORMATION
  Report Type: Report from Study
  Country: None (occurrence: US)
  Receive Date: 20160923
  Receipt Date: 20171018
  Transmission Date: 20180320
  Serious: Yes (Life-Threatening, Hospitalization, Disabling, Other)
  Sender: FDA-Public Use
  Company Number: US-ABBVIE-16K-163-1728610-00

PATIENT
  Age: 56 Year
  Sex: Male
  Weight: 114.86 kg

DRUGS (9)
  1. HUMIRA [Suspect]
     Active Substance: ADALIMUMAB
     Route: 058
     Dates: start: 201505, end: 201701
  2. PREDNISONE. [Suspect]
     Active Substance: PREDNISONE
     Indication: CROHN^S DISEASE
  3. PREDNISONE. [Suspect]
     Active Substance: PREDNISONE
     Indication: INTESTINAL OBSTRUCTION
     Route: 065
     Dates: start: 2014
  4. HUMIRA [Suspect]
     Active Substance: ADALIMUMAB
     Indication: CROHN^S DISEASE
     Route: 058
     Dates: start: 201402, end: 201505
  5. COUMADIN [Concomitant]
     Active Substance: WARFARIN SODIUM
     Indication: ATRIAL FIBRILLATION
  6. VITAMIN B12 [Concomitant]
     Active Substance: CYANOCOBALAMIN
     Indication: PRODUCT USED FOR UNKNOWN INDICATION
     Route: 060
  7. HUMIRA [Suspect]
     Active Substance: ADALIMUMAB
     Dosage: DAY 15
     Route: 058
     Dates: start: 201710
  8. HUMIRA [Suspect]
     Active Substance: ADALIMUMAB
     Dosage: DAY 1
     Route: 058
     Dates: start: 201710, end: 201710
  9. PENTASA [Suspect]
     Active Substance: MESALAMINE
     Indication: CROHN^S DISEASE
     Route: 048
     Dates: start: 2017

REACTIONS (51)
  - Electrical burn [Recovered/Resolved]
  - Small intestinal perforation [Recovered/Resolved]
  - Paralysis [Recovered/Resolved]
  - Sepsis [Recovered/Resolved]
  - Intestinal perforation [Recovered/Resolved]
  - Musculoskeletal pain [Unknown]
  - Pain in extremity [Recovering/Resolving]
  - Malabsorption [Unknown]
  - Dysphagia [Unknown]
  - Heart rate abnormal [Recovered/Resolved]
  - Atrial fibrillation [Not Recovered/Not Resolved]
  - Abdominal pain [Not Recovered/Not Resolved]
  - Device dislocation [Recovered/Resolved]
  - Nerve injury [Recovering/Resolving]
  - Small intestinal obstruction [Recovered/Resolved]
  - Intestinal obstruction [Recovered/Resolved]
  - Muscle atrophy [Unknown]
  - Device issue [Unknown]
  - Blood pressure increased [Recovered/Resolved]
  - Burning sensation [Not Recovered/Not Resolved]
  - Weight decreased [Recovering/Resolving]
  - Paraesthesia [Not Recovered/Not Resolved]
  - Abdominal pain upper [Unknown]
  - Stoma complication [Not Recovered/Not Resolved]
  - Abdominal discomfort [Not Recovered/Not Resolved]
  - Small intestinal obstruction [Not Recovered/Not Resolved]
  - Staphylococcal infection [Unknown]
  - Procedural pain [Unknown]
  - Oesophageal pain [Unknown]
  - Abdominal hernia [Not Recovered/Not Resolved]
  - Stoma site oedema [Not Recovered/Not Resolved]
  - Gastrointestinal oedema [Unknown]
  - Intestinal stenosis [Unknown]
  - Crohn^s disease [Recovered/Resolved]
  - Stoma site discharge [Recovered/Resolved]
  - Gastrointestinal stoma complication [Unknown]
  - Gastrointestinal inflammation [Unknown]
  - White blood cell count increased [Recovered/Resolved]
  - Incorrect dose administered [Unknown]
  - Post procedural complication [Recovering/Resolving]
  - Stomal hernia [Recovering/Resolving]
  - Gastric mucosal lesion [Unknown]
  - Gastrointestinal stoma complication [Recovered/Resolved]
  - Impaired healing [Recovered/Resolved]
  - Injection site urticaria [Not Recovered/Not Resolved]
  - Blood glucose increased [Unknown]
  - Apnoea [Recovered/Resolved]
  - Gastrointestinal anastomotic leak [Recovered/Resolved]
  - Abdominal abscess [Recovered/Resolved]
  - International normalised ratio fluctuation [Not Recovered/Not Resolved]
  - Drug ineffective [Not Recovered/Not Resolved]

NARRATIVE: CASE EVENT DATE: 2014
